FAERS Safety Report 7005397-4 (Version None)
Quarter: 2010Q3

REPORT INFORMATION
  Report Type: 
  Country: None (occurrence: None)
  Receive Date: 20100921
  Receipt Date: 20100913
  Transmission Date: 20110219
  Serious: Yes (Hospitalization, Other)
  Sender: FDA-Public Use
  Company Number: US-ROCHE-693804

PATIENT
  Age: 80 Year
  Sex: Female

DRUGS (5)
  1. BONIVA [Suspect]
     Indication: PRODUCT USED FOR UNKNOWN INDICATION
     Dosage: FORM: PILL, 150 EVERY DAY
     Route: 048
     Dates: start: 20090715, end: 20100324
  2. CADUET [Suspect]
     Indication: PRODUCT USED FOR UNKNOWN INDICATION
     Dosage: FORM: PILL, 10/10 MG EVERY DAY
     Route: 065
  3. FOSAMAX [Concomitant]
  4. VITAMIN B COMPLEX CAP [Concomitant]
     Dosage: DOSE: EVERY DAY
  5. CALCIUM [Concomitant]

REACTIONS (6)
  - HYPERLIPIDAEMIA [None]
  - HYPERSENSITIVITY [None]
  - HYPERTENSION [None]
  - MYOCARDIAL INFARCTION [None]
  - OSTEOPENIA [None]
  - PAIN [None]
